FAERS Safety Report 7706352-9 (Version None)
Quarter: 2011Q3

REPORT INFORMATION
  Report Type: 
  Country: None (occurrence: None)
  Receive Date: 20110818
  Receipt Date: 20110808
  Transmission Date: 20111222
  Serious: Yes (Hospitalization)
  Sender: FDA-Public Use
  Company Number: TCI2011A03849

PATIENT
  Age: 79 Year
  Sex: Male

DRUGS (6)
  1. SEIBULE (MIGLITOL) [Concomitant]
  2. UFT [Concomitant]
  3. CRESTOR [Concomitant]
  4. AMARYL [Concomitant]
  5. ACTOS [Suspect]
     Indication: DIABETES MELLITUS
     Dosage: 30 MG (30 MG,L IN 1 D) ORAL
     Route: 048
     Dates: start: 20061026, end: 20110630
  6. JANUVIA [Concomitant]

REACTIONS (2)
  - URINARY BLADDER HAEMORRHAGE [None]
  - BLADDER NEOPLASM [None]
